FAERS Safety Report 22239929 (Version 1)
Quarter: 2023Q2

REPORT INFORMATION
  Report Type: Spontaneous
  Country: IT (occurrence: IT)
  Receive Date: 20230421
  Receipt Date: 20230421
  Transmission Date: 20230721
  Serious: Yes (Hospitalization, Other)
  Sender: FDA-Public Use
  Company Number: None

PATIENT
  Age: 92 Year
  Sex: Male

DRUGS (5)
  1. PLAVIX [Suspect]
     Active Substance: CLOPIDOGREL BISULFATE
     Indication: Antiplatelet therapy
     Dosage: 75 MG, QD
     Route: 048
     Dates: start: 20130401, end: 20230407
  2. LASIX [Concomitant]
     Active Substance: FUROSEMIDE
     Dosage: UNK
  3. NORVASC [Concomitant]
     Active Substance: AMLODIPINE BESYLATE
     Dosage: UNK
  4. ASACOL [Concomitant]
     Active Substance: MESALAMINE
     Dosage: UNK
  5. LANTUS [Concomitant]
     Active Substance: INSULIN GLARGINE
     Dosage: UNK

REACTIONS (2)
  - Rectal haemorrhage [Recovering/Resolving]
  - Anaemia [Recovering/Resolving]

NARRATIVE: CASE EVENT DATE: 20230407
